FAERS Safety Report 24443696 (Version 2)
Quarter: 2024Q4

REPORT INFORMATION
  Report Type: Report from Study
  Country: US (occurrence: US)
  Receive Date: 20241016
  Receipt Date: 20241017
  Transmission Date: 20250115
  Serious: No
  Sender: ROCHE
  Company Number: US-ROCHE-1940173

PATIENT
  Age: 39 Year
  Sex: Female

DRUGS (2)
  1. RITUXAN [Suspect]
     Active Substance: RITUXIMAB
     Indication: Multiple sclerosis
     Dosage: DAY 1 AND 15 DAY THEN EVERY 6 MONTHS?DATE OF TREATMENT: 23/APR/2018, 04/MAY/2018, 02/NOV/2018
     Route: 042
     Dates: start: 20171013
  2. RITUXAN [Suspect]
     Active Substance: RITUXIMAB
     Dosage: DAY 1 AND 15 DAY THEN EVERY 6 MONTHS
     Route: 042
     Dates: start: 20230210

REACTIONS (2)
  - No adverse event [Unknown]
  - Off label use [Unknown]
